FAERS Safety Report 10161747 (Version 2)
Quarter: 2014Q3

REPORT INFORMATION
  Report Type: Spontaneous
  Country: AU (occurrence: AU)
  Receive Date: 20140509
  Receipt Date: 20140815
  Transmission Date: 20150326
  Serious: Yes (Other)
  Sender: FDA-Public Use
  Company Number: AU-009507513-1405AUS000860

PATIENT
  Sex: Female
  Weight: 120 kg

DRUGS (1)
  1. CELESTONE CHRONODOSE [Suspect]
     Active Substance: BETAMETHASONE ACETATE\BETAMETHASONE SODIUM PHOSPHATE
     Indication: JOINT INJURY
     Dosage: UNK

REACTIONS (7)
  - Chest pain [Unknown]
  - Swollen tongue [Unknown]
  - Palpitations [Unknown]
  - Injection site pain [Unknown]
  - Malaise [Recovered/Resolved]
  - Dyspnoea [Unknown]
  - Pharyngeal oedema [Unknown]
